FAERS Safety Report 5201751-1 (Version None)
Quarter: 2006Q4

REPORT INFORMATION
  Report Type: 
  Country: None (occurrence: None)
  Receive Date: 20061013
  Receipt Date: 20051208
  Transmission Date: 20070319
  Serious: Yes (Hospitalization)
  Sender: FDA-Public Use
  Company Number: 200519608US

PATIENT
  Sex: Male

DRUGS (2)
  1. DDAVP [Suspect]
     Indication: NOCTURIA
     Dosage: 500 TWO SUCCESSIVE NIGHTS MG QD PO
     Route: 048
  2. CHLORTHALIDONE [Suspect]

REACTIONS (5)
  - ANXIETY [None]
  - CENTRAL NERVOUS SYSTEM LESION [None]
  - GRAND MAL CONVULSION [None]
  - HYPONATRAEMIA [None]
  - MALAISE [None]
